FAERS Safety Report 6255616-7 (Version None)
Quarter: 2009Q3

REPORT INFORMATION
  Report Type: 
  Country: None (occurrence: None)
  Receive Date: 20090701
  Receipt Date: 20090619
  Transmission Date: 20100115
  Serious: Yes (Hospitalization)
  Sender: FDA-Public Use
  Company Number: 235932K09USA

PATIENT
  Age: 48 Year
  Sex: Female
  Weight: 112 kg

DRUGS (6)
  1. REBIF [Suspect]
     Indication: MULTIPLE SCLEROSIS
     Dosage: 44 MCG, 3 IN 1 WEEKS, SUBCUTANEOUS
     Route: 058
     Dates: start: 20090201
  2. SERTRALINE [Concomitant]
  3. LISINOPRIL [Concomitant]
  4. VALIUM [Concomitant]
  5. ZANAFLEX [Concomitant]
  6. OMEPRAZOLE [Concomitant]

REACTIONS (8)
  - ANIMAL BITE [None]
  - BLOOD PRESSURE INCREASED [None]
  - CHEST PAIN [None]
  - DYSPNOEA [None]
  - INFECTED BITES [None]
  - INJECTION SITE CELLULITIS [None]
  - OESOPHAGEAL SPASM [None]
  - OXYGEN SATURATION DECREASED [None]
